FAERS Safety Report 11306487 (Version 2)
Quarter: 2015Q3

REPORT INFORMATION
  Report Type: Spontaneous
  Country: US (occurrence: US)
  Receive Date: 20150723
  Receipt Date: 20150904
  Transmission Date: 20151125
  Serious: No
  Sender: FDA-Public Use
  Company Number: US-009507513-1507USA000433

PATIENT
  Age: 17 Year
  Sex: Female
  Weight: 98.96 kg

DRUGS (4)
  1. NEXPLANON [Suspect]
     Active Substance: ETONOGESTREL
     Indication: MENSTRUAL DISORDER
  2. MOTRIN [Concomitant]
     Active Substance: IBUPROFEN
     Dosage: 1 DF, Q8H
     Route: 048
  3. NEXPLANON [Suspect]
     Active Substance: ETONOGESTREL
     Indication: CONTRACEPTION
     Dosage: 1 ROD/ ONE EVERY THREE YEARS
     Route: 059
     Dates: start: 20140217
  4. PERIDEX (CHLORHEXIDINE GLUCONATE) [Concomitant]
     Dosage: 15 ML SWISH 30 SECONDS AND SPIT TWICE DAILY.
     Route: 048

REACTIONS (4)
  - Device breakage [Not Recovered/Not Resolved]
  - Drug administration error [Unknown]
  - Drug ineffective for unapproved indication [Unknown]
  - Device kink [Not Recovered/Not Resolved]

NARRATIVE: CASE EVENT DATE: 201402
